FAERS Safety Report 12242034 (Version 1)
Quarter: 2016Q2

REPORT INFORMATION
  Report Type: Spontaneous
  Country: DE (occurrence: DE)
  Receive Date: 20160406
  Receipt Date: 20160406
  Transmission Date: 20160815
  Serious: Yes (Hospitalization, Other)
  Sender: FDA-Public Use
  Company Number: DE-ELI_LILLY_AND_COMPANY-DE201603009942

PATIENT
  Age: 74 Year
  Sex: Male

DRUGS (16)
  1. SEROQUEL [Concomitant]
     Active Substance: QUETIAPINE FUMARATE
     Indication: PRODUCT USED FOR UNKNOWN INDICATION
     Dosage: 50 MG, UNKNOWN
     Route: 065
     Dates: start: 20110901
  2. SEROQUEL [Concomitant]
     Active Substance: QUETIAPINE FUMARATE
     Dosage: 100 MG, UNKNOWN
     Route: 065
     Dates: start: 20110902, end: 20110904
  3. ZYPREXA [Suspect]
     Active Substance: OLANZAPINE
     Dosage: 20 MG, UNKNOWN
     Route: 065
     Dates: start: 20110806, end: 20110818
  4. ZYPREXA [Suspect]
     Active Substance: OLANZAPINE
     Dosage: 15 MG, UNKNOWN
     Route: 065
     Dates: start: 20110819, end: 20110828
  5. ZYPREXA [Suspect]
     Active Substance: OLANZAPINE
     Dosage: 10 MG, UNKNOWN
     Route: 065
     Dates: start: 20110829
  6. ZYPREXA [Suspect]
     Active Substance: OLANZAPINE
     Dosage: 5 MG, UNKNOWN
     Route: 065
     Dates: start: 20110804
  7. ORFIRIL [Concomitant]
     Active Substance: VALPROIC ACID
     Dosage: 1050 MG, UNKNOWN
     Route: 065
     Dates: start: 20110905
  8. SEROQUEL [Concomitant]
     Active Substance: QUETIAPINE FUMARATE
     Dosage: 100 MG, UNKNOWN
     Route: 065
     Dates: start: 20110904
  9. ORFIRIL [Concomitant]
     Active Substance: VALPROIC ACID
     Indication: PRODUCT USED FOR UNKNOWN INDICATION
     Dosage: 450 MG, UNKNOWN
     Route: 065
     Dates: start: 20110818
  10. ORFIRIL [Concomitant]
     Active Substance: VALPROIC ACID
     Dosage: 900 MG, UNKNOWN
     Route: 065
     Dates: start: 20110819, end: 20110824
  11. ZYPREXA [Suspect]
     Active Substance: OLANZAPINE
     Dosage: 10 MG, UNKNOWN
     Route: 065
     Dates: start: 20110805
  12. ORFIRIL [Concomitant]
     Active Substance: VALPROIC ACID
     Dosage: 1050 MG, UNKNOWN
     Route: 065
     Dates: start: 20110825, end: 20110829
  13. ZYPREXA [Suspect]
     Active Substance: OLANZAPINE
     Dosage: 5 MG, UNKNOWN
     Route: 065
     Dates: start: 20110830, end: 20110831
  14. ZYPREXA [Suspect]
     Active Substance: OLANZAPINE
     Indication: PRODUCT USED FOR UNKNOWN INDICATION
     Dosage: 2.5 MG, UNKNOWN
     Route: 065
     Dates: start: 20110802
  15. SEROQUEL [Concomitant]
     Active Substance: QUETIAPINE FUMARATE
     Dosage: 200 MG, UNKNOWN
     Route: 065
     Dates: start: 20110905
  16. SEROQUEL [Concomitant]
     Active Substance: QUETIAPINE FUMARATE
     Dosage: 400 MG, UNKNOWN
     Route: 065
     Dates: start: 20110906

REACTIONS (7)
  - Speech disorder [Unknown]
  - Cognitive disorder [Unknown]
  - Electroencephalogram abnormal [Unknown]
  - Akathisia [Recovered/Resolved]
  - Energy increased [Unknown]
  - Gait disturbance [Unknown]
  - Dementia [Unknown]

NARRATIVE: CASE EVENT DATE: 20110819
